FAERS Safety Report 8041983-0 (Version None)
Quarter: 2012Q1

REPORT INFORMATION
  Report Type: 
  Country: None (occurrence: None)
  Receive Date: 20120112
  Receipt Date: 20120107
  Transmission Date: 20120608
  Serious: Yes (Death, Other)
  Sender: FDA-Public Use
  Company Number: PHHY2012US001691

PATIENT
  Age: 48 Year
  Sex: Female

DRUGS (3)
  1. METHOTREXATE [Concomitant]
     Dosage: UNK UKN, UNK
  2. CYCLOSPORINE [Suspect]
     Indication: PROPHYLAXIS AGAINST GRAFT VERSUS HOST DISEASE
     Dosage: UNK UKN, UNK
  3. MYCOPHENOLATE MOFETIL [Concomitant]
     Indication: PROPHYLAXIS AGAINST GRAFT VERSUS HOST DISEASE
     Dosage: UNK UKN, UNK

REACTIONS (15)
  - HEPATIC CIRRHOSIS [None]
  - CHLOROMA [None]
  - MULTI-ORGAN FAILURE [None]
  - MASS [None]
  - ASPARTATE AMINOTRANSFERASE INCREASED [None]
  - ALANINE AMINOTRANSFERASE INCREASED [None]
  - CYTOMEGALOVIRUS INFECTION [None]
  - ACUTE GRAFT VERSUS HOST DISEASE IN SKIN [None]
  - DIARRHOEA [None]
  - HEPATIC FAILURE [None]
  - VENOOCCLUSIVE LIVER DISEASE [None]
  - IRON OVERLOAD [None]
  - ACUTE GRAFT VERSUS HOST DISEASE IN LIVER [None]
  - RASH [None]
  - GRAFT VERSUS HOST DISEASE IN INTESTINE [None]
